FAERS Safety Report 26032129 (Version 1)
Quarter: 2025Q4

REPORT INFORMATION
  Report Type: Spontaneous
  Country: EU (occurrence: EU)
  Receive Date: 20251112
  Receipt Date: 20251112
  Transmission Date: 20260118
  Serious: Yes (Hospitalization, Other)
  Sender: AUROBINDO
  Company Number: EU-ROCHE-10000124848

PATIENT
  Age: 51 Year
  Sex: Female
  Weight: 66 kg

DRUGS (17)
  1. CARBOPLATIN [Suspect]
     Active Substance: CARBOPLATIN
     Indication: Triple negative breast cancer
     Dosage: UNK (AUC 5, ON 31-DEC-2024, RECEIVED THE LAST DOSE OF CARBOPLATIN (570 MG))
     Route: 042
     Dates: start: 20241015
  2. ATEZOLIZUMAB [Suspect]
     Active Substance: ATEZOLIZUMAB
     Indication: Triple negative breast cancer
     Dosage: 1200 MILLIGRAM (ON 31-DEC-2024, SHE RECEIVED THE LAST DOSE OF ATEZOLIZUMAB (1200 MG)ON 04-MAR-2025,
     Route: 042
     Dates: start: 20241015
  3. TIRAGOLUMAB [Suspect]
     Active Substance: TIRAGOLUMAB
     Indication: Triple negative breast cancer
     Dosage: 600 MILLIGRAM (ON 31-DEC-2024, SHE RECEIVED THE LAST DOSE OF TIRAGOLUMAB(600 MG)ON 04-MAR-2025, SHE
     Route: 042
     Dates: start: 20241015
  4. PACLITAXEL [Suspect]
     Active Substance: PACLITAXEL
     Indication: Triple negative breast cancer
     Dosage: 100 MILLIGRAM/SQ. METER (ON DAYS 1, 8, AND 15,ON 14-JAN-2025, SHE RECEIVED THE LAST DOSE OF NAB PACL
     Route: 042
     Dates: start: 20141015
  5. Akynzeo [Concomitant]
     Indication: Product used for unknown indication
     Dosage: UNK
     Route: 048
     Dates: start: 20241015
  6. PREDNISONE [Concomitant]
     Active Substance: PREDNISONE
     Indication: Product used for unknown indication
     Dosage: UNK
     Route: 048
     Dates: start: 20241015
  7. BILASTINE [Concomitant]
     Active Substance: BILASTINE
     Indication: Product used for unknown indication
     Dosage: 20 MILLIGRAM (IN THE EVENING)
     Route: 048
  8. BILASTINE [Concomitant]
     Active Substance: BILASTINE
     Dosage: 20 MILLIGRAM, ONCE A DAY
     Route: 065
     Dates: start: 20250130, end: 20250301
  9. INNOHEP [Concomitant]
     Active Substance: TINZAPARIN SODIUM
     Indication: Product used for unknown indication
     Dosage: 1200 MILLIGRAM
     Route: 042
     Dates: start: 20250121, end: 20250220
  10. INNOHEP [Concomitant]
     Active Substance: TINZAPARIN SODIUM
     Dosage: 14000 INTERNATIONAL UNIT
     Route: 065
     Dates: start: 20250130, end: 20250220
  11. INNOHEP [Concomitant]
     Active Substance: TINZAPARIN SODIUM
     Dosage: 12000 INTERNATIONAL UNIT, ONCE A DAY (12000 IU/D SC)
     Route: 065
  12. LANSOPRAZOLE [Concomitant]
     Active Substance: LANSOPRAZOLE
     Indication: Product used for unknown indication
     Dosage: 30 MILLIGRAM, ONCE A DAY
     Route: 048
  13. LANSOPRAZOLE [Concomitant]
     Active Substance: LANSOPRAZOLE
     Dosage: 15 MILLIGRAM
     Route: 048
  14. PANTOPRAZOLE [Concomitant]
     Active Substance: PANTOPRAZOLE
     Indication: Product used for unknown indication
     Dosage: 40 MILLIGRAM, ONCE A DAY
     Route: 065
  15. CEFAZOLIN [Concomitant]
     Active Substance: CEFAZOLIN
     Indication: Product used for unknown indication
     Dosage: 2 GRAM
     Route: 042
  16. DOLIPRANE [Concomitant]
     Active Substance: ACETAMINOPHEN
     Indication: Product used for unknown indication
     Dosage: 6 DOSAGE FORM, ONCE A DAY
     Route: 065
     Dates: start: 20250130, end: 20250301
  17. ACETAMINOPHEN [Concomitant]
     Active Substance: ACETAMINOPHEN
     Indication: Product used for unknown indication
     Dosage: UNK UNK, AS NECESSARY (AS NEEDED)
     Route: 065

REACTIONS (6)
  - Bacteraemia [Recovered/Resolved]
  - Toxic skin eruption [Recovered/Resolved]
  - Pyrexia [Not Recovered/Not Resolved]
  - Implant site infection [Recovered/Resolved]
  - Device related infection [Recovered/Resolved]
  - Sepsis [Not Recovered/Not Resolved]

NARRATIVE: CASE EVENT DATE: 20241024
